FAERS Safety Report 17784675 (Version 1)
Quarter: 2020Q2

REPORT INFORMATION
  Report Type: Spontaneous
  Country: US (occurrence: US)
  Receive Date: 20200513
  Receipt Date: 20200513
  Transmission Date: 20200714
  Serious: Yes (Hospitalization)
  Sender: FDA-Public Use
  Company Number: None

PATIENT
  Age: 39 Year
  Sex: Male
  Weight: 104.33 kg

DRUGS (1)
  1. CEFUROXIME (CEFUROXIME AXETIL 500MG TAB) [Suspect]
     Active Substance: CEFUROXIME
     Indication: UPPER RESPIRATORY TRACT INFECTION
     Route: 048
     Dates: start: 20200205, end: 20200207

REACTIONS (5)
  - Rash erythematous [None]
  - Rash [None]
  - Hypersensitivity [None]
  - Febrile neutropenia [None]
  - Drug eruption [None]

NARRATIVE: CASE EVENT DATE: 20200207
